FAERS Safety Report 8023059-1 (Version None)
Quarter: 2012Q1

REPORT INFORMATION
  Report Type: 
  Country: None (occurrence: None)
  Receive Date: 20120104
  Receipt Date: 20120103
  Transmission Date: 20120608
  Serious: Yes (Death)
  Sender: FDA-Public Use
  Company Number: US-PFIZER INC-2011313892

PATIENT
  Age: 34 Year
  Sex: Female

DRUGS (7)
  1. BUPRENORPHINE HCL AND NALOXONE HCL [Suspect]
     Route: 060
  2. FENTANYL [Suspect]
     Route: 062
  3. OXYCODONE HYDROCHLORIDE [Suspect]
  4. CARISOPRODOL [Suspect]
  5. ALPRAZOLAM [Suspect]
  6. LIDOCAINE HYDROCHLORIDE [Suspect]
  7. MEPROBAMATE [Suspect]

REACTIONS (3)
  - CARDIAC ARREST [None]
  - DEATH [None]
  - RESPIRATORY ARREST [None]
